FAERS Safety Report 13936842 (Version 6)
Quarter: 2017Q4

REPORT INFORMATION
  Report Type: Spontaneous
  Country: TW (occurrence: TW)
  Receive Date: 20170905
  Receipt Date: 20171016
  Transmission Date: 20180320
  Serious: Yes (Life-Threatening, Hospitalization, Disabling, Other)
  Sender: FDA-Public Use
  Company Number: TW-BRISTOL-MYERS SQUIBB COMPANY-BMS-2017-078431

PATIENT
  Age: 62 Year
  Sex: Female
  Weight: 48 kg

DRUGS (1)
  1. OPDIVO [Suspect]
     Active Substance: NIVOLUMAB
     Indication: NASOPHARYNGEAL CANCER
     Dosage: 120 MG, Q2WK
     Route: 042
     Dates: start: 20170718, end: 20170912

REACTIONS (6)
  - Septic shock [Unknown]
  - Malignant neoplasm progression [Unknown]
  - Respiratory failure [Unknown]
  - Prescribed underdose [Unknown]
  - Dyspnoea [Unknown]
  - Limb mass [Unknown]

NARRATIVE: CASE EVENT DATE: 20170821
